FAERS Safety Report 25249120 (Version 1)
Quarter: 2025Q2

REPORT INFORMATION
  Report Type: Spontaneous
  Country: US (occurrence: US)
  Receive Date: 20250429
  Receipt Date: 20250429
  Transmission Date: 20250716
  Serious: Yes (Other)
  Sender: COOPERSURGICAL
  Company Number: US-COOPERSURGICAL, INC.-2025CPS003265

PATIENT
  Age: 35 Year
  Sex: Female
  Weight: 93.424 kg

DRUGS (3)
  1. PARAGARD T 380A [Suspect]
     Active Substance: COPPER
     Indication: Contraception
     Route: 015
     Dates: start: 20120612
  2. LABETALOL [Concomitant]
     Active Substance: LABETALOL
     Dates: start: 201101, end: 202209
  3. METFORMIN [Concomitant]
     Active Substance: METFORMIN HYDROCHLORIDE
     Dates: start: 202001, end: 202209

REACTIONS (11)
  - Reproductive complication associated with device [Unknown]
  - Device breakage [Not Recovered/Not Resolved]
  - Foreign body in reproductive tract [Not Recovered/Not Resolved]
  - Complication of device removal [Not Recovered/Not Resolved]
  - Pregnancy with contraceptive device [Unknown]
  - Drug ineffective [Unknown]
  - Coital bleeding [Not Recovered/Not Resolved]
  - Back pain [Unknown]
  - Menstrual disorder [Unknown]
  - Intermenstrual bleeding [Not Recovered/Not Resolved]
  - Abdominal pain [Not Recovered/Not Resolved]

NARRATIVE: CASE EVENT DATE: 20210218
